FAERS Safety Report 4829565-2 (Version None)
Quarter: 2005Q4

REPORT INFORMATION
  Report Type: 
  Country: None (occurrence: None)
  Receive Date: 20051116
  Receipt Date: 20051025
  Transmission Date: 20060501
  Serious: Yes (Hospitalization)
  Sender: FDA-Public Use
  Company Number: GBWYE089926OCT05

PATIENT
  Sex: Female

DRUGS (12)
  1. ENBREL [Suspect]
     Indication: RHEUMATOID ARTHRITIS
     Route: 058
     Dates: start: 20040901, end: 20051014
  2. METHOTREXATE [Suspect]
     Route: 048
     Dates: start: 20000101
  3. PREDNISOLONE [Concomitant]
     Dosage: 10 MG DAILY
     Route: 065
     Dates: start: 19940901
  4. DICLOFENAC [Concomitant]
     Dosage: UNKNOWN
     Route: 065
     Dates: start: 19910101
  5. FOLIC ACID [Concomitant]
     Route: 065
     Dates: start: 20000101
  6. LANSOPRAZOLE [Concomitant]
     Route: 065
  7. ATENOLOL [Concomitant]
     Route: 065
  8. ACTONEL [Concomitant]
     Route: 065
  9. INDAPAMIDE [Concomitant]
     Route: 065
  10. TRAMADOL HCL [Concomitant]
     Route: 065
  11. CALCIUM GLUCONATE [Concomitant]
     Route: 065
  12. ZANEDIP [Concomitant]
     Route: 065

REACTIONS (2)
  - JOINT SWELLING [None]
  - PULMONARY EMBOLISM [None]
